FAERS Safety Report 18183698 (Version 1)
Quarter: 2020Q3

REPORT INFORMATION
  Report Type: Spontaneous
  Country: US (occurrence: US)
  Receive Date: 20200822
  Receipt Date: 20200822
  Transmission Date: 20201103
  Serious: No
  Sender: FDA-Public Use
  Company Number: US-ANIPHARMA-2020-US-006459

PATIENT
  Age: 56 Year
  Sex: Female

DRUGS (2)
  1. IBRANCE [Suspect]
     Active Substance: PALBOCICLIB
     Indication: BREAST CANCER
     Dosage: 125 MG DAILY TIMES 21 DAYS, OFF 7 DAYS WITH ANASTRAZOLE
     Route: 048
     Dates: start: 20200220
  2. ANASTROZOLE. [Suspect]
     Active Substance: ANASTROZOLE
     Indication: PRODUCT USED FOR UNKNOWN INDICATION
     Dosage: UNKNOWN
     Route: 065

REACTIONS (3)
  - Taste disorder [Not Recovered/Not Resolved]
  - Diarrhoea [Recovering/Resolving]
  - Nausea [Recovering/Resolving]
